FAERS Safety Report 22533806 (Version 2)
Quarter: 2023Q2

REPORT INFORMATION
  Report Type: Spontaneous
  Country: US (occurrence: US)
  Receive Date: 20230608
  Receipt Date: 20230619
  Transmission Date: 20230722
  Serious: Yes (Hospitalization)
  Sender: FDA-Public Use
  Company Number: US202305010856

PATIENT
  Age: 66 Year
  Sex: Male
  Weight: 77 kg

DRUGS (12)
  1. BENDAMUSTINE HYDROCHLORIDE [Suspect]
     Active Substance: BENDAMUSTINE HYDROCHLORIDE
     Indication: B-cell small lymphocytic lymphoma
     Dosage: 700 MG, CYCLE 1 BR THERAPY
     Route: 042
     Dates: start: 20230329
  2. BENDAMUSTINE HYDROCHLORIDE [Suspect]
     Active Substance: BENDAMUSTINE HYDROCHLORIDE
     Indication: Chronic lymphocytic leukaemia
     Dosage: 700 MG, CYCLE 2 BR THERAPY
     Route: 042
     Dates: start: 20230502
  3. RITUXIMAB [Suspect]
     Active Substance: RITUXIMAB
     Indication: B-cell small lymphocytic lymphoma
     Dosage: 136 MG, CYCLE 1 BR THERAPY
     Route: 042
     Dates: start: 20230329
  4. RITUXIMAB [Suspect]
     Active Substance: RITUXIMAB
     Indication: Chronic lymphocytic leukaemia
     Dosage: 136 MG, CYCLE 2 BR THERAPY
     Route: 042
     Dates: start: 20230502
  5. NALTREXONE [Concomitant]
     Active Substance: NALTREXONE
     Indication: Epstein-Barr virus infection
     Dosage: UNK
     Route: 065
     Dates: start: 201501
  6. HYDROCODONE BITARTRATE AND ACETAMINOPHEN [Concomitant]
     Active Substance: ACETAMINOPHEN\HYDROCODONE BITARTRATE
     Indication: Pain
     Dosage: UNK
     Route: 065
     Dates: start: 201501
  7. PALMIDROL [Concomitant]
     Active Substance: PALMIDROL
     Indication: Neuralgia
     Dosage: UNK
     Route: 065
     Dates: start: 201501
  8. LEVOCETIRIZINE [Concomitant]
     Active Substance: LEVOCETIRIZINE
     Indication: Potentiating drug interaction
     Dosage: UNK
     Route: 065
     Dates: start: 20230421
  9. AZELASTINE HYDROCHLORIDE [Concomitant]
     Active Substance: AZELASTINE HYDROCHLORIDE
     Indication: Seasonal allergy
     Dosage: UNK
     Route: 065
     Dates: start: 20230424
  10. DIPHENHYDRAMINE [Concomitant]
     Active Substance: DIPHENHYDRAMINE
     Indication: Seasonal allergy
     Dosage: UNK
     Route: 065
     Dates: start: 201501
  11. MELATONIN [Concomitant]
     Active Substance: MELATONIN
     Indication: Insomnia
     Dosage: UNK
     Route: 065
     Dates: start: 201501
  12. ALLOPURINOL [Concomitant]
     Active Substance: ALLOPURINOL
     Indication: Hyperuricaemia
     Dosage: UNK
     Route: 065
     Dates: start: 20230328

REACTIONS (1)
  - Pleural effusion [Recovering/Resolving]

NARRATIVE: CASE EVENT DATE: 20230517
